FAERS Safety Report 4480616-7 (Version None)
Quarter: 2004Q4

REPORT INFORMATION
  Report Type: 
  Country: None (occurrence: None)
  Receive Date: 20041019
  Receipt Date: 20041006
  Transmission Date: 20050328
  Serious: Yes (Hospitalization)
  Sender: FDA-Public Use
  Company Number: 2004038316

PATIENT
  Age: 64 Year
  Sex: Male

DRUGS (5)
  1. CARDURA [Suspect]
     Indication: BENIGN PROSTATIC HYPERPLASIA
     Dosage: 4 MG (4 MG,1 IN 1 D), ORAL
     Route: 048
     Dates: start: 20030801, end: 20040503
  2. PRAVASTATIN SODIUM [Concomitant]
  3. DILTIAZEM HYDROCHLORIDE [Concomitant]
  4. ISOSORBIDE MONONITRATE [Concomitant]
  5. LITHIUM CARBONATE [Concomitant]

REACTIONS (1)
  - PROSTATECTOMY [None]
